FAERS Safety Report 4717830-9 (Version None)
Quarter: 2005Q3

REPORT INFORMATION
  Report Type: 
  Country: None (occurrence: None)
  Receive Date: 20050715
  Receipt Date: 20050630
  Transmission Date: 20060218
  Serious: Yes (Hospitalization)
  Sender: FDA-Public Use
  Company Number: 215573

PATIENT
  Age: 72 Year
  Sex: Female
  Weight: 73 kg

DRUGS (9)
  1. MABTHERA (RITUXIMAB) CONC FOR SOLUTION FOR INFUSION [Suspect]
     Indication: LYMPHOMA
     Dosage: SEE IMAGE
     Route: 042
     Dates: start: 20050519, end: 20050519
  2. MABTHERA (RITUXIMAB) CONC FOR SOLUTION FOR INFUSION [Suspect]
     Indication: LYMPHOMA
     Dosage: SEE IMAGE
     Route: 042
     Dates: start: 20050519, end: 20050519
  3. CLONIXIN LYSINATE [Concomitant]
  4. METAMIZOLE MAGNESIUM (DIPYRONE MAGNESIUM SALT) [Concomitant]
  5. FUROSEMIDE [Concomitant]
  6. TRAZODONE HCL [Concomitant]
  7. PREDNISOLONE SODIUM SUCCINATE INJ [Concomitant]
  8. FERROUS SULFATE TAB [Concomitant]
  9. AMOXICILLIN/CLAVULANIC ACID (CLAVULANATE POTASSIUM) [Concomitant]

REACTIONS (5)
  - CHILLS [None]
  - HAEMODYNAMIC INSTABILITY [None]
  - INFUSION RELATED REACTION [None]
  - PROSTRATION [None]
  - SYNCOPE [None]
